FAERS Safety Report 7385373-2 (Version None)
Quarter: 2011Q1

REPORT INFORMATION
  Report Type: 
  Country: None (occurrence: None)
  Receive Date: 20110330
  Receipt Date: 20110311
  Transmission Date: 20110831
  Serious: No
  Sender: FDA-Public Use
  Company Number: US-MYLANLABS-2010S1021777

PATIENT
  Age: 60 Year
  Sex: Female

DRUGS (2)
  1. EMSAM [Suspect]
     Route: 062
     Dates: start: 20080101
  2. EMSAM [Suspect]
     Indication: DEPRESSION
     Dosage: CHANGED PATCHES QD
     Route: 062
     Dates: start: 20080101

REACTIONS (3)
  - DRUG EFFECT DECREASED [None]
  - ADVERSE EVENT [None]
  - APPLICATION SITE DRYNESS [None]
